FAERS Safety Report 18986697 (Version 1)
Quarter: 2021Q1

REPORT INFORMATION
  Report Type: Spontaneous
  Country: US (occurrence: US)
  Receive Date: 20210309
  Receipt Date: 20210309
  Transmission Date: 20210420
  Serious: No
  Sender: FDA-Public Use
  Company Number: None

PATIENT
  Age: 75 Year
  Sex: Male
  Weight: 81 kg

DRUGS (1)
  1. BAMLANIVIMAB (EUA) (BAMLANIVIMAB (EUA)) [Suspect]
     Active Substance: BAMLANIVIMAB\ETESEVIMAB
     Indication: SARS-COV-2 TEST POSITIVE
     Route: 042
     Dates: start: 20210305, end: 20210305

REACTIONS (8)
  - Nausea [None]
  - Headache [None]
  - Vomiting [None]
  - Chills [None]
  - Myalgia [None]
  - Condition aggravated [None]
  - Asthenia [None]
  - Pyrexia [None]

NARRATIVE: CASE EVENT DATE: 20210305
